FAERS Safety Report 23073074 (Version 1)
Quarter: 2023Q4

REPORT INFORMATION
  Report Type: Spontaneous
  Country: AU (occurrence: AU)
  Receive Date: 20231017
  Receipt Date: 20231017
  Transmission Date: 20240110
  Serious: Yes (Other)
  Sender: FDA-Public Use
  Company Number: AU-JNJFOC-20231019591

PATIENT

DRUGS (2)
  1. IBRUTINIB [Suspect]
     Active Substance: IBRUTINIB
     Indication: Waldenstrom^s macroglobulinaemia
     Route: 048
  2. ZANUBRUTINIB [Suspect]
     Active Substance: ZANUBRUTINIB
     Indication: Waldenstrom^s macroglobulinaemia
     Route: 065

REACTIONS (9)
  - Cardiotoxicity [Unknown]
  - Oedema peripheral [Unknown]
  - Haemorrhage [Unknown]
  - Diarrhoea [Unknown]
  - Pneumonia [Unknown]
  - Contusion [Unknown]
  - Infection [Unknown]
  - Atrial fibrillation [Unknown]
  - Muscle spasms [Unknown]
